FAERS Safety Report 16873723 (Version 1)
Quarter: 2019Q4

REPORT INFORMATION
  Report Type: Spontaneous
  Country: US (occurrence: US)
  Receive Date: 20191001
  Receipt Date: 20191001
  Transmission Date: 20200122
  Serious: Yes (Death)
  Sender: FDA-Public Use
  Company Number: US-PFIZER INC-2019411508

PATIENT
  Age: 32 Year
  Sex: Male
  Weight: 72 kg

DRUGS (19)
  1. VORICONAZOLE. [Suspect]
     Active Substance: VORICONAZOLE
     Dosage: 5.5 MG/KG, 2X/DAY (DAYS AFTER INITIATION OF IV VORICONAZOLE THERAPY +24) (TOTAL DAILY DOSE 792 MG)
     Route: 042
  2. VORICONAZOLE. [Suspect]
     Active Substance: VORICONAZOLE
     Dosage: 8.5 MG/KG, 2X/DAY (DAYS AFTER INITIATION OF IV VORICONAZOLE THERAPY +48) (TOTAL DAILY DOSE 1224 MG)
     Route: 042
  3. VORICONAZOLE. [Suspect]
     Active Substance: VORICONAZOLE
     Dosage: 10 MG/KG, 2X/DAY (DAYS AFTER INITIATION OF IV VORICONAZOLE THERAPY +9) (TOTAL DAILY DOSE 1440MG)
     Route: 042
  4. VORICONAZOLE. [Suspect]
     Active Substance: VORICONAZOLE
     Dosage: 8.5 MG/KG, 2X/DAY (DAYS AFTER INITIATION OF IV VORICONAZOLE THERAPY +12) (TOTAL DAILY DOSE 1224 MG)
     Route: 042
  5. VORICONAZOLE. [Suspect]
     Active Substance: VORICONAZOLE
     Dosage: 8.5 MG/KG, 3X/DAY (DAYS AFTER INITIATION OF IV VORICONAZOLE THERAPY +110) (TOTAL DAILY DOSE 1836 MG)
     Route: 042
  6. AMBISOME [Suspect]
     Active Substance: AMPHOTERICIN B
     Indication: ASPERGILLUS INFECTION
     Dosage: 7.5 MG/KG, DAILY (7.5 MG/KG/D)
     Route: 042
  7. VORICONAZOLE. [Suspect]
     Active Substance: VORICONAZOLE
     Dosage: 6.5 MG/KG, 3X/DAY (DAYS AFTER INITIATION OF IV VORICONAZOLE THERAPY +69) (TOTAL DAILY DOSE 1404 MG)
     Route: 042
  8. VORICONAZOLE. [Suspect]
     Active Substance: VORICONAZOLE
     Indication: ASPERGILLUS INFECTION
     Dosage: 8.5 MG/KG, 2X/DAY (DAYS AFTER INITIATION OF IV VORICONAZOLE THERAPY +4) (TOTAL DAILY DOSE 1224 MG)
     Route: 042
  9. VORICONAZOLE. [Suspect]
     Active Substance: VORICONAZOLE
     Dosage: 5.5 MG/KG, 2X/DAY (DAYS AFTER INITIATION OF IV VORICONAZOLE THERAPY +19) (TOTAL DAILY DOSE 792 MG)
     Route: 042
  10. VORICONAZOLE. [Suspect]
     Active Substance: VORICONAZOLE
     Dosage: 8.5 MG/KG, 3X/DAY (DAYS AFTER INITIATION OF IV VORICONAZOLE THERAPY +101) (TOTAL DAILY DOSE 1836 MG)
     Route: 042
  11. VORICONAZOLE. [Suspect]
     Active Substance: VORICONAZOLE
     Dosage: 5.5 MG/KG, 2X/DAY (DAYS AFTER INITIATION OF IV VORICONAZOLE THERAPY +28) (TOTAL DAILY DOSE 792 MG)
     Route: 042
  12. VORICONAZOLE. [Suspect]
     Active Substance: VORICONAZOLE
     Dosage: 7.5 MG/KG, 3X/DAY (DAYS AFTER INITIATION OF IV VORICONAZOLE THERAPY +96) (TOTAL DAILY DOSE 1620MG)
     Route: 042
  13. MICAFUNGIN. [Suspect]
     Active Substance: MICAFUNGIN SODIUM
     Indication: ASPERGILLUS INFECTION
     Dosage: 150 MG, DAILY
     Route: 042
  14. VORICONAZOLE. [Suspect]
     Active Substance: VORICONAZOLE
     Dosage: 8.5 MG/KG, 2X/DAY (DAYS AFTER INITIATION OF IV VORICONAZOLE THERAPY +36) (TOTAL DAILY DOSE 1224 MG)
     Route: 042
  15. VORICONAZOLE. [Suspect]
     Active Substance: VORICONAZOLE
     Dosage: 8.5 MG/KG, 3X/DAY (DAYS AFTER INITIATION OF IV VORICONAZOLE THERAPY +74) (TOTAL DAILY DOSE 1728 MG)
     Route: 042
  16. VORICONAZOLE. [Suspect]
     Active Substance: VORICONAZOLE
     Dosage: 6.5 MG/KG, 3X/DAY (DAYS AFTER INITIATION OF IV VORICONAZOLE THERAPY +91)  (TOTAL DAILY DOSE 1404 MG)
     Route: 042
  17. VORICONAZOLE. [Suspect]
     Active Substance: VORICONAZOLE
     Dosage: 8.5 MG/KG, 3X/DAY (DAYS AFTER INITIATION OF IV VORICONAZOLE THERAPY +106) (TOTAL DAILY DOSE 1836 MG)
     Route: 042
  18. AMBISOME [Suspect]
     Active Substance: AMPHOTERICIN B
     Indication: MENINGITIS FUNGAL
  19. VORICONAZOLE. [Suspect]
     Active Substance: VORICONAZOLE
     Dosage: 6.5 MG/KG, 3X/DAY (DAYS AFTER INITIATION OF IV VORICONAZOLE THERAPY +58) (TOTAL DAILY DOSE 1404 MG)
     Route: 042

REACTIONS (1)
  - Drug ineffective [Fatal]
